FAERS Safety Report 5360138-1 (Version None)
Quarter: 2007Q2

REPORT INFORMATION
  Report Type: 
  Country: None (occurrence: None)
  Receive Date: 20070618
  Receipt Date: 20070612
  Transmission Date: 20071010
  Serious: Yes (Death, Other)
  Sender: FDA-Public Use
  Company Number: PHBS2007IT09884

PATIENT
  Age: 50 Year

DRUGS (2)
  1. CYCLOSPORINE [Suspect]
     Indication: CHRONIC GRAFT VERSUS HOST DISEASE
  2. CORTICOSTEROIDS [Suspect]
     Indication: CHRONIC GRAFT VERSUS HOST DISEASE

REACTIONS (7)
  - DIPLOPIA [None]
  - HEMIANOPIA HOMONYMOUS [None]
  - HEPATIC FAILURE [None]
  - JC VIRUS INFECTION [None]
  - MUSCULAR WEAKNESS [None]
  - PANCREATIC CARCINOMA [None]
  - PROGRESSIVE MULTIFOCAL LEUKOENCEPHALOPATHY [None]
